FAERS Safety Report 18582424 (Version 2)
Quarter: 2020Q4

REPORT INFORMATION
  Report Type: Spontaneous
  Country: FR (occurrence: FR)
  Receive Date: 20201205
  Receipt Date: 20201231
  Transmission Date: 20210114
  Serious: Yes (Hospitalization)
  Sender: FDA-Public Use
  Company Number: FR-AUROBINDO-AUR-APL-2020-059587

PATIENT
  Age: 61 Year
  Sex: Male
  Weight: 63 kg

DRUGS (8)
  1. AFLIBERCEPT [Suspect]
     Active Substance: AFLIBERCEPT
     Dosage: UNK UNK, CYCLICAL
     Route: 042
  2. IRINOTECAN [Suspect]
     Active Substance: IRINOTECAN
     Dosage: UNK UNK, CYCLICAL
     Route: 042
  3. FLUOROURACIL. [Suspect]
     Active Substance: FLUOROURACIL
     Indication: COLORECTAL CANCER METASTATIC
     Dosage: UNK UNK, CYCLICAL
     Route: 042
     Dates: start: 20200115, end: 20200115
  4. FLUOROURACIL. [Suspect]
     Active Substance: FLUOROURACIL
     Dosage: UNK UNK, CYCLICAL
     Route: 042
  5. FOLINIC ACID [Suspect]
     Active Substance: LEUCOVORIN
     Indication: COLORECTAL CANCER METASTATIC
     Dosage: UNK UNK, CYCLICAL
     Route: 042
     Dates: start: 20200115, end: 20200115
  6. AFLIBERCEPT [Suspect]
     Active Substance: AFLIBERCEPT
     Indication: COLORECTAL CANCER METASTATIC
     Dosage: UNK UNK, CYCLICAL
     Route: 042
     Dates: start: 20200115, end: 20200115
  7. FOLINIC ACID [Suspect]
     Active Substance: LEUCOVORIN
     Dosage: UNK UNK, CYCLICAL
     Route: 042
  8. IRINOTECAN [Suspect]
     Active Substance: IRINOTECAN
     Indication: COLORECTAL CANCER METASTATIC
     Dosage: UNK UNK, CYCLICAL
     Route: 042
     Dates: start: 20200115, end: 20200115

REACTIONS (1)
  - General physical health deterioration [Recovered/Resolved]

NARRATIVE: CASE EVENT DATE: 20200414
